FAERS Safety Report 5640798-8 (Version None)
Quarter: 2008Q1

REPORT INFORMATION
  Report Type: 
  Country: None (occurrence: None)
  Receive Date: 20080225
  Receipt Date: 20080214
  Transmission Date: 20080703
  Serious: Yes (Hospitalization)
  Sender: FDA-Public Use
  Company Number: B0507343A

PATIENT
  Age: 21 Year
  Sex: Female

DRUGS (1)
  1. ADVAIR DISKUS 100/50 [Suspect]
     Indication: ASTHMA
     Dosage: TWICE PER DAY / INHALED
     Route: 055
     Dates: start: 20071218

REACTIONS (3)
  - DYSPNOEA [None]
  - EPISTAXIS [None]
  - PNEUMONIA [None]
